FAERS Safety Report 6209618-7 (Version None)
Quarter: 2009Q2

REPORT INFORMATION
  Report Type: 
  Country: None (occurrence: None)
  Receive Date: 20090529
  Receipt Date: 20090529
  Transmission Date: 20091009
  Serious: Yes (Other)
  Sender: FDA-Public Use
  Company Number: None

PATIENT
  Sex: Female

DRUGS (2)
  1. LEVETIRACETAM [Suspect]
     Indication: EPILEPSY
     Dosage: 1,000 MG BID P.O.
     Route: 048
     Dates: start: 20090327
  2. TOPIRAMATE [Suspect]
     Indication: EPILEPSY
     Dosage: 200 MG BID P.O.
     Route: 048
     Dates: start: 20090512

REACTIONS (2)
  - CONVULSION [None]
  - PRODUCT SUBSTITUTION ISSUE [None]
